FAERS Safety Report 6569910-3 (Version None)
Quarter: 2010Q1

REPORT INFORMATION
  Report Type: 
  Country: None (occurrence: None)
  Receive Date: 20100204
  Receipt Date: 20100128
  Transmission Date: 20100710
  Serious: Yes (Hospitalization)
  Sender: FDA-Public Use
  Company Number: PHHO2009US15027

PATIENT
  Sex: Female
  Weight: 107.7 kg

DRUGS (20)
  1. CERTICAN [Suspect]
     Indication: LIVER TRANSPLANT
     Dosage: 6.0MG/DAY
     Route: 048
     Dates: start: 20090910
  2. TACROLIMUS [Suspect]
     Indication: LIVER TRANSPLANT
     Dosage: 6.0MG/DAY
     Route: 048
     Dates: start: 20090812, end: 20091203
  3. TACROLIMUS [Suspect]
     Dosage: UNK
     Route: 048
  4. PREDNISONE [Concomitant]
     Indication: LIVER TRANSPLANT
  5. BACTRIM DS [Concomitant]
  6. ACYCLOVIR [Concomitant]
  7. LIMBREL [Concomitant]
  8. MAGNESIUM OXIDE [Concomitant]
  9. CALCIUM [Concomitant]
  10. VITAMIN D [Concomitant]
  11. AMLODIPINE [Concomitant]
  12. ACTONEL [Concomitant]
  13. URSO 250 [Concomitant]
  14. LASIX [Concomitant]
  15. NPH INSULIN [Concomitant]
  16. LANTUS [Concomitant]
  17. HUMALOG [Concomitant]
  18. REGULAR INSULIN [Concomitant]
  19. ALBUTEROL [Concomitant]
  20. PROTONIX [Concomitant]

REACTIONS (3)
  - BURNING SENSATION [None]
  - HERPES ZOSTER [None]
  - PAIN [None]
